FAERS Safety Report 24104122 (Version 2)
Quarter: 2024Q3

REPORT INFORMATION
  Report Type: Spontaneous
  Country: US (occurrence: US)
  Receive Date: 20240717
  Receipt Date: 20240724
  Transmission Date: 20241017
  Serious: No
  Sender: PFIZER
  Company Number: US-PFIZER INC-202400215328

PATIENT
  Sex: Male

DRUGS (2)
  1. DOCETAXEL [Suspect]
     Active Substance: DOCETAXEL\DOCETAXEL ANHYDROUS
     Indication: Non-small cell lung cancer
  2. LORLATINIB [Suspect]
     Active Substance: LORLATINIB
     Indication: Non-small cell lung cancer

REACTIONS (2)
  - Neoplasm progression [Unknown]
  - Off label use [Unknown]
